FAERS Safety Report 10203562 (Version 1)
Quarter: 2014Q2

REPORT INFORMATION
  Report Type: Spontaneous
  Country: US (occurrence: US)
  Receive Date: 20140529
  Receipt Date: 20140529
  Transmission Date: 20141212
  Serious: No
  Sender: FDA-Public Use
  Company Number: US-TEVA-484861USA

PATIENT
  Sex: Female
  Weight: 68.1 kg

DRUGS (1)
  1. ACTIQ [Suspect]

REACTIONS (1)
  - Tooth loss [Unknown]
